FAERS Safety Report 11227903 (Version 1)
Quarter: 2015Q2

REPORT INFORMATION
  Report Type: Spontaneous
  Country: US (occurrence: US)
  Receive Date: 20150630
  Receipt Date: 20150630
  Transmission Date: 20150821
  Serious: No
  Sender: FDA-Public Use
  Company Number: US-BAYER-2015-362528

PATIENT
  Age: 72 Year
  Sex: Female
  Weight: 68.48 kg

DRUGS (6)
  1. B-COMPLEX [VITAMIN B NOS] [Concomitant]
     Active Substance: VITAMINS
  2. OXYTROL FOR WOMEN [Suspect]
     Active Substance: OXYBUTYNIN
     Indication: HYPERTONIC BLADDER
     Dosage: 1 DF, ONCE EVERY 4 DAYS
     Route: 061
     Dates: start: 2012, end: 20150619
  3. CALCITRATE [CALCIUM] [Concomitant]
  4. FISH OIL [Concomitant]
     Active Substance: FISH OIL
  5. OXYTROL FOR WOMEN [Suspect]
     Active Substance: OXYBUTYNIN
     Indication: HYPERTONIC BLADDER
     Dosage: 1 DF, ONCE EVERY 4 DAYS
     Route: 061
     Dates: start: 2012, end: 20150619
  6. OXYTROL FOR WOMEN [Suspect]
     Active Substance: OXYBUTYNIN
     Indication: HYPERTONIC BLADDER
     Dosage: 1 DF, ONCE EVERY 4 DAYS
     Route: 061
     Dates: start: 2012, end: 20150619

REACTIONS (1)
  - Expired product administered [None]

NARRATIVE: CASE EVENT DATE: 2015
